FAERS Safety Report 10195087 (Version 1)
Quarter: 2014Q2

REPORT INFORMATION
  Report Type: Spontaneous
  Country: BR (occurrence: BR)
  Receive Date: 20140526
  Receipt Date: 20140526
  Transmission Date: 20141212
  Serious: Yes (Death, Other)
  Sender: FDA-Public Use
  Company Number: PHHY2014BR063352

PATIENT
  Sex: 0

DRUGS (5)
  1. CICLOSPORIN [Suspect]
     Indication: PROPHYLAXIS AGAINST GRAFT VERSUS HOST DISEASE
  2. METHOTREXATE [Suspect]
     Indication: PROPHYLAXIS AGAINST GRAFT VERSUS HOST DISEASE
  3. METHYLPREDNISOLONE [Suspect]
     Indication: ACUTE GRAFT VERSUS HOST DISEASE
     Dosage: 2 MG/KG
  4. BASILIXIMAB [Suspect]
     Indication: ACUTE GRAFT VERSUS HOST DISEASE
  5. INFLIXIMAB [Suspect]
     Indication: ACUTE GRAFT VERSUS HOST DISEASE

REACTIONS (6)
  - Sepsis [Fatal]
  - Lymphoma [Fatal]
  - Acute graft versus host disease in intestine [Unknown]
  - Acute graft versus host disease in skin [Unknown]
  - Acute graft versus host disease in liver [Unknown]
  - Drug ineffective [Unknown]
